FAERS Safety Report 12559476 (Version 1)
Quarter: 2016Q3

REPORT INFORMATION
  Report Type: Spontaneous
  Country: US (occurrence: None)
  Receive Date: 20160714
  Receipt Date: 20160714
  Transmission Date: 20161109
  Serious: No
  Sender: FDA-Public Use
  Company Number: None

PATIENT
  Age: 46 Year
  Sex: Male
  Weight: 76.2 kg

DRUGS (4)
  1. CREST PRO-HEALTH ADVANCED [Suspect]
     Active Substance: STANNOUS FLUORIDE
     Dates: start: 20160712, end: 20160712
  2. VITAMIN D [Concomitant]
     Active Substance: CHOLECALCIFEROL
  3. FISH OIL [Concomitant]
     Active Substance: FISH OIL
  4. ZYRTEC [Concomitant]
     Active Substance: CETIRIZINE HYDROCHLORIDE

REACTIONS (2)
  - Oral discomfort [None]
  - Tongue discomfort [None]

NARRATIVE: CASE EVENT DATE: 20160712
